FAERS Safety Report 21999135 (Version 1)
Quarter: 2023Q1

REPORT INFORMATION
  Report Type: Spontaneous
  Country: GB (occurrence: GB)
  Receive Date: 20230216
  Receipt Date: 20230216
  Transmission Date: 20230417
  Serious: Yes (Other)
  Sender: FDA-Public Use
  Company Number: None

PATIENT
  Age: 77 Year
  Sex: Male

DRUGS (16)
  1. PENICILLIN G SODIUM [Suspect]
     Active Substance: PENICILLIN G SODIUM
     Indication: Ill-defined disorder
     Dosage: UNK
     Route: 065
     Dates: start: 20230206
  2. AZTREONAM [Concomitant]
     Active Substance: AZTREONAM
     Indication: Ill-defined disorder
     Dosage: 1 G
     Route: 065
     Dates: start: 20230203
  3. CEFTRIAXONE [Concomitant]
     Active Substance: CEFTRIAXONE
     Indication: Ill-defined disorder
     Dosage: 2 G
     Route: 065
     Dates: start: 20230206, end: 20230206
  4. CYCLIZINE [Concomitant]
     Active Substance: CYCLIZINE
     Indication: Ill-defined disorder
     Dosage: 1 DOSAGE FORM (1 TABLET)
     Route: 065
     Dates: start: 20230205
  5. DALTEPARIN [Concomitant]
     Active Substance: DALTEPARIN
     Indication: Ill-defined disorder
     Dosage: UNK, 5,000 UNIT
     Route: 065
     Dates: start: 20230205, end: 20230206
  6. GABAPENTIN [Concomitant]
     Active Substance: GABAPENTIN
     Indication: Ill-defined disorder
     Dosage: 1 DOSAGE FORM (1 CAPSULE)
     Route: 065
     Dates: start: 20230203
  7. HALOPERIDOL [Concomitant]
     Active Substance: HALOPERIDOL
     Indication: Ill-defined disorder
     Dosage: 1 MG
     Route: 065
     Dates: start: 20230205, end: 20230205
  8. LANSOPRAZOLE [Concomitant]
     Active Substance: LANSOPRAZOLE
     Indication: Ill-defined disorder
     Dosage: 1 DOSAGE FORM (1 CAPSULE)
     Route: 065
     Dates: start: 20230204
  9. LEVOTHYROXINE [Concomitant]
     Active Substance: LEVOTHYROXINE
     Indication: Ill-defined disorder
     Dosage: 1 DOSAGE FORM (1 TABLET)
     Route: 065
     Dates: start: 20230204
  10. LORAZEPAM [Concomitant]
     Active Substance: LORAZEPAM
     Indication: Ill-defined disorder
     Dosage: UNK, 0.5-1 MG
     Route: 065
     Dates: start: 20230206
  11. MEMANTINE [Concomitant]
     Active Substance: MEMANTINE
     Indication: Ill-defined disorder
     Dosage: 2 DOSAGE FORM (2 TABLET)
     Route: 065
     Dates: start: 20230204
  12. METRONIDAZOLE [Concomitant]
     Active Substance: METRONIDAZOLE
     Indication: Ill-defined disorder
     Dosage: 500 MG
     Route: 065
     Dates: start: 20230203
  13. ACETAMINOPHEN [Concomitant]
     Active Substance: ACETAMINOPHEN
     Indication: Ill-defined disorder
     Dosage: 1 G
     Route: 065
     Dates: start: 20230205, end: 20230206
  14. SODIUM CHLORIDE [Concomitant]
     Active Substance: SODIUM CHLORIDE
     Indication: Ill-defined disorder
     Dosage: 5 ML
     Route: 065
     Dates: start: 20230203
  15. SODIUM LACTATE [Concomitant]
     Active Substance: SODIUM LACTATE
     Indication: Ill-defined disorder
     Dosage: UNK
     Route: 065
     Dates: start: 20230203
  16. TEICOPLANIN [Concomitant]
     Active Substance: TEICOPLANIN
     Indication: Ill-defined disorder
     Dosage: 400 MG
     Route: 065
     Dates: start: 20230204

REACTIONS (1)
  - Rash [Unknown]

NARRATIVE: CASE EVENT DATE: 20230206
